FAERS Safety Report 15719958 (Version 3)
Quarter: 2019Q4

REPORT INFORMATION
  Report Type: Report from Study
  Country: DE (occurrence: US)
  Receive Date: 20181213
  Receipt Date: 20191203
  Transmission Date: 20200122
  Serious: Yes (Other)
  Sender: FDA-Public Use
  Company Number: US-TEVA-2018-US-988160

PATIENT
  Age: 59 Year
  Sex: Female

DRUGS (1)
  1. CLINDAMYCIN. [Suspect]
     Active Substance: CLINDAMYCIN
     Indication: ANTIBIOTIC PROPHYLAXIS
     Dosage: 1.2 GRAM DAILY;
     Route: 048

REACTIONS (4)
  - Post procedural fistula [Recovered/Resolved]
  - Graft infection [Recovered/Resolved]
  - Surgical failure [Recovered/Resolved]
  - Purulent discharge [Recovered/Resolved]
